FAERS Safety Report 4438680-7 (Version None)
Quarter: 2004Q3

REPORT INFORMATION
  Report Type: 
  Country: None (occurrence: None)
  Receive Date: 20040830
  Receipt Date: 20040830
  Transmission Date: 20050211
  Serious: Yes (Hospitalization)
  Sender: FDA-Public Use
  Company Number: None

PATIENT
  Age: 69 Year
  Sex: Male

DRUGS (3)
  1. LITHIUM [Suspect]
     Indication: BIPOLAR DISORDER
     Dosage: 300 MG QD , 600 MG HS
     Dates: start: 19800101
  2. LISINOPRIL [Concomitant]
  3. VALPROIC ACID [Concomitant]

REACTIONS (1)
  - MENTAL STATUS CHANGES [None]
